FAERS Safety Report 4478231-4 (Version None)
Quarter: 2004Q4

REPORT INFORMATION
  Report Type: 
  Country: None (occurrence: None)
  Receive Date: 20041018
  Receipt Date: 20041018
  Transmission Date: 20050328
  Serious: Yes (Hospitalization)
  Sender: FDA-Public Use
  Company Number: None

PATIENT
  Sex: Male

DRUGS (4)
  1. LISINOPRIL [Suspect]
     Dosage: 40 MG QD
  2. GLYBURIDE [Concomitant]
  3. ROSIGLITAZONE MALEATE [Concomitant]
  4. METOPROLOL SUCCINATE [Concomitant]

REACTIONS (1)
  - BLOOD CREATININE INCREASED [None]
